FAERS Safety Report 9016793 (Version 1)
Quarter: 2013Q1

REPORT INFORMATION
  Report Type: Report from Study
  Country: US (occurrence: US)
  Receive Date: 20130117
  Receipt Date: 20130117
  Transmission Date: 20140127
  Serious: No
  Sender: FDA-Public Use
  Company Number: US-VERTEX PHARMACEUTICALS INC.-2013-000676

PATIENT
  Sex: Male

DRUGS (20)
  1. VX-950 (TELAPREVIR) [Suspect]
     Indication: HEPATITIS C
     Dosage: 750 MG, TID
     Route: 048
  2. PEGASYS [Suspect]
     Indication: HEPATITIS C
  3. RIBAVIRIN [Suspect]
     Indication: HEPATITIS C
     Dosage: 200 MG, UNK
  4. PROTONIX [Concomitant]
     Dosage: 20 MG, UNK
  5. AMPICILLIN [Concomitant]
     Dosage: 10 GM
  6. CELEBREX [Concomitant]
     Dosage: 100 MG, UNK
  7. ALLEGRA [Concomitant]
     Dosage: 30 MG, UNK
  8. NOVOLOG [Concomitant]
     Dosage: 100/ML
  9. HYDROCHLOROTH [Concomitant]
     Dosage: 12.5 MG, UNK
  10. ZINC [Concomitant]
     Dosage: 50 MG, UNK
  11. PYCNOGENOL [Concomitant]
     Dosage: 25 MG, UNK
  12. NORCO [Concomitant]
     Dosage: 10-325 MG
  13. POT GLUCONAT [Concomitant]
     Dosage: 2.5 MEQ
  14. CINNAMON                           /01647501/ [Concomitant]
     Dosage: 500 MG, UNK
  15. SAW PALMETTO                       /00833501/ [Concomitant]
  16. FLEXALL [Concomitant]
  17. CO ENZYME Q10                      /00517201/ [Concomitant]
     Dosage: 50 MG, UNK
  18. MAGNESIUM [Concomitant]
     Dosage: 300 MG, UNK
  19. VITAMIN D3 [Concomitant]
     Dosage: 10000 UT, UNK
  20. BYDUREON [Concomitant]

REACTIONS (3)
  - Muscle spasms [Unknown]
  - Influenza like illness [Unknown]
  - Insomnia [Unknown]
